FAERS Safety Report 16523738 (Version 3)
Quarter: 2019Q3

REPORT INFORMATION
  Report Type: Spontaneous
  Country: BE (occurrence: BE)
  Receive Date: 20190702
  Receipt Date: 20190812
  Transmission Date: 20191004
  Serious: Yes (Hospitalization, Disabling, Other)
  Sender: FDA-Public Use
  Company Number: BE-MYLANLABS-2019M1061063

PATIENT
  Age: 72 Year
  Sex: Female

DRUGS (10)
  1. RIFAMPICIN [Interacting]
     Active Substance: RIFAMPIN
     Indication: BACTERIAL INFECTION
     Dosage: UNK
     Route: 065
     Dates: start: 2000
  2. CITALOPRAM [Concomitant]
     Active Substance: CITALOPRAM HYDROBROMIDE
     Indication: PRODUCT USED FOR UNKNOWN INDICATION
     Dosage: UNK
  3. LORMETAZEPAM [Concomitant]
     Active Substance: LORMETAZEPAM
     Dosage: UNK
  4. LINEZOLID. [Interacting]
     Active Substance: LINEZOLID
     Indication: BACTERIAL INFECTION
     Dosage: 600 MG, 2X/DAY
     Route: 065
     Dates: start: 20010126, end: 20011206
  5. INSULIN [Concomitant]
     Active Substance: INSULIN NOS
     Dosage: UNK
  6. CIPROXINE                          /00697201/ [Concomitant]
     Active Substance: CIPROFLOXACIN
     Indication: BACTERIAL INFECTION
     Dosage: 750 MG, BID
     Route: 048
     Dates: start: 20010126, end: 20011204
  7. CIPROFLOXACIN. [Interacting]
     Active Substance: CIPROFLOXACIN
     Indication: ESCHERICHIA INFECTION
     Dosage: UNK
     Route: 065
     Dates: start: 2000
  8. RIFAMPICIN [Interacting]
     Active Substance: RIFAMPIN
     Indication: STAPHYLOCOCCAL INFECTION
     Dosage: UNK
     Route: 048
     Dates: start: 20010126, end: 20011204
  9. MESULID [Concomitant]
     Active Substance: NIMESULIDE
     Indication: OSTEOARTHRITIS
     Dosage: 100 MILLIGRAM, QD
     Route: 048
     Dates: start: 2001, end: 20011206
  10. LINEZOLID. [Suspect]
     Active Substance: LINEZOLID
     Indication: STAPHYLOCOCCAL INFECTION
     Dosage: UNK
     Route: 065
     Dates: start: 2000

REACTIONS (5)
  - Ocular hypertension [Recovered/Resolved]
  - Optic neuritis [Recovered/Resolved with Sequelae]
  - Drug interaction [Unknown]
  - Visual acuity reduced [Recovering/Resolving]
  - Vision blurred [Recovered/Resolved with Sequelae]

NARRATIVE: CASE EVENT DATE: 20011115
